FAERS Safety Report 21769667 (Version 1)
Quarter: 2022Q4

REPORT INFORMATION
  Report Type: Spontaneous
  Country: US (occurrence: US)
  Receive Date: 20221223
  Receipt Date: 20221223
  Transmission Date: 20230112
  Serious: Yes (Hospitalization)
  Sender: FDA-Public Use
  Company Number: US-BIOVITRUM-2022US15321

PATIENT
  Sex: Female
  Weight: 8 kg

DRUGS (2)
  1. SYNAGIS [Suspect]
     Active Substance: PALIVIZUMAB
     Indication: Trisomy 21
     Dosage: SYNAGIS 100 MG SDV/PF 1ML 1^S INJECT 15 MG/KG INTO THE MUSCLE ONCE A MONTH.
  2. SYNAGIS [Suspect]
     Active Substance: PALIVIZUMAB
     Indication: Antiviral prophylaxis
     Dosage: SYNAGIS 50 MG SDV/PF 1ML 0.5^S INJECT 15 MG/KG INTO THE MUSCLE ONCE A MONTH.

REACTIONS (1)
  - Respiratory syncytial virus infection [Unknown]
